FAERS Safety Report 8531948-4 (Version None)
Quarter: 2012Q3

REPORT INFORMATION
  Report Type: 
  Country: None (occurrence: None)
  Receive Date: 20120723
  Receipt Date: 20120712
  Transmission Date: 20120928
  Serious: Yes (Other)
  Sender: FDA-Public Use
  Company Number: JP-FRI-1000037172

PATIENT
  Sex: Female
  Weight: 46 kg

DRUGS (14)
  1. ZOLOFT [Concomitant]
     Dosage: 50 MG
     Route: 048
     Dates: start: 20111102, end: 20111107
  2. ZOLOFT [Concomitant]
     Dosage: 100 MG
     Route: 048
     Dates: start: 20111116, end: 20120516
  3. ZOLOFT [Concomitant]
     Dosage: 75 MG
     Route: 048
     Dates: start: 20111108, end: 20111115
  4. ZOLOFT [Concomitant]
     Dosage: 25 MG
     Route: 048
     Dates: start: 20120530, end: 20120605
  5. DOGMATYL [Concomitant]
     Dosage: 150 MG
     Route: 048
     Dates: start: 20120411, end: 20120502
  6. DOGMATYL [Concomitant]
     Dosage: 50 MG
     Route: 048
     Dates: start: 20120616
  7. ZOLPIDEM [Concomitant]
     Dosage: 10 MG
     Route: 048
     Dates: start: 20111102
  8. ZOLOFT [Concomitant]
     Dosage: 50 MG
     Route: 048
     Dates: start: 20120517, end: 20120529
  9. LEXAPRO [Suspect]
     Indication: DEPRESSION
     Dosage: 10 MG
     Route: 048
     Dates: start: 20120517, end: 20120614
  10. PALGIN [Concomitant]
     Dosage: 0.5 MG
     Route: 048
     Dates: start: 20111102
  11. LEXAPRO [Suspect]
     Dosage: 5 MG
     Route: 048
     Dates: start: 20120615, end: 20120619
  12. DOGMATYL [Concomitant]
     Dosage: 100 MG
     Route: 048
     Dates: start: 20120523, end: 20120610
  13. DOGMATYL [Concomitant]
     Dosage: 75 MG
     Route: 048
     Dates: start: 20120611, end: 20120615
  14. FLUNITRAZEPAM [Concomitant]
     Dosage: 2 MG
     Route: 048
     Dates: start: 20111102

REACTIONS (1)
  - CONVULSION [None]
